FAERS Safety Report 16611504 (Version 3)
Quarter: 2019Q3

REPORT INFORMATION
  Report Type: Report from Study
  Country: None (occurrence: JP)
  Receive Date: 20190722
  Receipt Date: 20190913
  Transmission Date: 20191004
  Serious: Yes (Hospitalization)
  Sender: FDA-Public Use
  Company Number: JP-BAUSCH-BL-2019-006291

PATIENT
  Age: 69 Year
  Sex: Male
  Weight: 58 kg

DRUGS (15)
  1. DOGMATYL [Concomitant]
     Active Substance: SULPIRIDE
     Dosage: DOSE REDUCED
     Route: 048
     Dates: start: 20180117, end: 20180215
  2. BELSOMRA [Concomitant]
     Active Substance: SUVOREXANT
     Indication: INSOMNIA
     Route: 048
     Dates: start: 20170807
  3. DEPAS [Concomitant]
     Indication: PANIC DISORDER
     Route: 048
     Dates: start: 20170807
  4. LIMAS [Concomitant]
     Active Substance: LITHIUM CARBONATE
     Indication: PANIC DISORDER
     Route: 048
     Dates: start: 20170807, end: 20180326
  5. SODIUM PICOSULFATE HYDRATE [Concomitant]
     Active Substance: SODIUM PICOSULFATE
     Indication: CONSTIPATION
     Dosage: 10 ML AS NECESSARY
     Route: 048
     Dates: start: 20180327
  6. DOGMATYL [Concomitant]
     Active Substance: SULPIRIDE
     Dosage: DOSE REDUCED
     Route: 048
     Dates: start: 20180314
  7. CHOREAZINE TABLETS 12.5 MG [Suspect]
     Active Substance: TETRABENAZINE
     Indication: HUNTINGTON^S DISEASE
     Route: 048
     Dates: start: 20170807, end: 20171212
  8. CHOREAZINE TABLETS 12.5 MG [Suspect]
     Active Substance: TETRABENAZINE
     Route: 048
     Dates: start: 20171213, end: 20180312
  9. DOGMATYL [Concomitant]
     Active Substance: SULPIRIDE
     Indication: HUNTINGTON^S DISEASE
     Route: 048
     Dates: start: 20170807, end: 20180116
  10. CHOREAZINE TABLETS 12.5 MG [Suspect]
     Active Substance: TETRABENAZINE
     Route: 048
     Dates: start: 20180314, end: 20180329
  11. SENIRAN [Concomitant]
     Active Substance: BROMAZEPAM
     Indication: PANIC DISORDER
     Route: 048
     Dates: start: 20170807
  12. DOGMATYL [Concomitant]
     Active Substance: SULPIRIDE
     Route: 048
     Dates: start: 20180216, end: 20180313
  13. FAMOTIDINE OD [Concomitant]
     Active Substance: FAMOTIDINE
     Indication: CHRONIC GASTRITIS
     Route: 048
     Dates: start: 20180327
  14. MOSAPRIDE CITRATE HYDRATE [Concomitant]
     Active Substance: MOSAPRIDE CITRATE DIHYDRATE
     Indication: CONSTIPATION
     Route: 048
     Dates: start: 20180327
  15. JZOLOFT [Concomitant]
     Active Substance: SERTRALINE HYDROCHLORIDE
     Indication: PANIC DISORDER
     Route: 048
     Dates: start: 20170807

REACTIONS (2)
  - Panic disorder [Recovering/Resolving]
  - Depressive symptom [Recovering/Resolving]

NARRATIVE: CASE EVENT DATE: 20180205
